FAERS Safety Report 23885599 (Version 1)
Quarter: 2024Q2

REPORT INFORMATION
  Report Type: Spontaneous
  Country: IT (occurrence: IT)
  Receive Date: 20240522
  Receipt Date: 20240522
  Transmission Date: 20240716
  Serious: Yes (Hospitalization, Other)
  Sender: FDA-Public Use
  Company Number: None

PATIENT
  Age: 81 Year
  Sex: Female

DRUGS (9)
  1. APIXABAN [Suspect]
     Active Substance: APIXABAN
     Indication: Atrial fibrillation
     Dosage: 5 MILLIGRAM, QD (2.5 MG 1 TABLET AT 8 AM + 1 TABLET AT 8 PM)
     Route: 048
     Dates: start: 20240322, end: 20240422
  2. RAMIPRIL [Concomitant]
     Active Substance: RAMIPRIL
     Dosage: 2.5 MILLIGRAM, QD (1 TABLET AT 8 AM)
     Route: 048
  3. ESOMEPRAZOLE [Concomitant]
     Active Substance: ESOMEPRAZOLE
     Dosage: 20 MILLIGRAM, QD (1 TABLET AT 8 AM)
     Route: 048
  4. ROSUVASTATIN [Concomitant]
     Active Substance: ROSUVASTATIN
     Indication: Hypercholesterolaemia
     Dosage: 5 MILLIGRAM, QD (1 TABLET AT 8 PM)
     Route: 048
  5. FUROSEMIDE [Concomitant]
     Active Substance: FUROSEMIDE
     Dosage: 500 MILLIGRAM, QD (500 MG 3/4 TABLET AT 8 AM AND 1/2 TABLET AT 8 PM)
     Route: 048
  6. PAROXETINE [Concomitant]
     Active Substance: PAROXETINE
     Dosage: 20 MILLIGRAM, QD (1 TABLET AT 8 PM)
     Route: 048
  7. TAPENTADOL [Concomitant]
     Active Substance: TAPENTADOL
     Indication: Pain
     Dosage: 100 MILLIGRAM, QD (50 MG 1 TABLET AT 8 AM AND 8 PM)
     Route: 048
  8. BISOPROLOL FUMARATE [Concomitant]
     Active Substance: BISOPROLOL FUMARATE
     Dosage: 7.5 MILLIGRAM, QD (3.75 MG 1 TABLET AT 8 AM AND 8 PM)
     Route: 048
  9. Luvion [Concomitant]
     Dosage: 50 MILLIGRAM, QD (100 MG 1/2 TABLET AT 8 PM)
     Route: 048

REACTIONS (6)
  - Dyspnoea [Recovered/Resolved]
  - Sopor [Recovering/Resolving]
  - Oliguria [Recovering/Resolving]
  - Oxygen saturation decreased [Recovering/Resolving]
  - Blood loss anaemia [Unknown]
  - Haemothorax [Recovering/Resolving]

NARRATIVE: CASE EVENT DATE: 20240423
